FAERS Safety Report 8822737 (Version 2)
Quarter: 2012Q4

REPORT INFORMATION
  Report Type: Report from Study
  Country: GB (occurrence: GB)
  Receive Date: 20121003
  Receipt Date: 20121011
  Transmission Date: 20130627
  Serious: Yes (Hospitalization)
  Sender: FDA-Public Use
  Company Number: GB-ROCHE-1108231

PATIENT
  Age: 76 Year
  Sex: Female
  Weight: 59.1 kg

DRUGS (4)
  1. ZELBORAF [Suspect]
     Indication: NEOPLASM MALIGNANT
     Dosage: last dose prior to AE: 19/Aug/2012, Temporarily Interrupted on 20/Aug/2012.
     Route: 048
     Dates: start: 20120723, end: 20120820
  2. ZELBORAF [Suspect]
     Route: 065
     Dates: start: 20120828
  3. ATENOLOL [Concomitant]
     Route: 065
     Dates: start: 20120824
  4. LEVOTHYROXIN [Concomitant]
     Route: 065
     Dates: start: 20120824

REACTIONS (1)
  - Dehydration [Recovered/Resolved]
